FAERS Safety Report 16813685 (Version 1)
Quarter: 2019Q3

REPORT INFORMATION
  Report Type: Report from Study
  Country: TN (occurrence: TN)
  Receive Date: 20190917
  Receipt Date: 20190917
  Transmission Date: 20191005
  Serious: Yes (Hospitalization)
  Sender: FDA-Public Use
  Company Number: TN-EMD SERONO-9116032

PATIENT
  Age: 34 Year
  Sex: Female

DRUGS (1)
  1. REBIF [Suspect]
     Active Substance: INTERFERON BETA-1A
     Indication: MULTIPLE SCLEROSIS
     Route: 058

REACTIONS (6)
  - Cyst [Unknown]
  - Multiple sclerosis relapse [Recovering/Resolving]
  - Fall [Unknown]
  - Ligament sprain [Not Recovered/Not Resolved]
  - Depressed mood [Unknown]
  - Stress [Unknown]

NARRATIVE: CASE EVENT DATE: 2016
